FAERS Safety Report 7205570-6 (Version None)
Quarter: 2010Q4

REPORT INFORMATION
  Report Type: 
  Country: None (occurrence: None)
  Receive Date: 20101231
  Receipt Date: 20101222
  Transmission Date: 20110411
  Serious: Yes (Hospitalization, Other)
  Sender: FDA-Public Use
  Company Number: IL-BRISTOL-MYERS SQUIBB COMPANY-15466527

PATIENT
  Age: 72 Year
  Sex: Male

DRUGS (4)
  1. ERBITUX [Suspect]
     Indication: HEAD AND NECK CANCER
     Dosage: NO OF INFUSIONS:2
     Dates: start: 20101209, end: 20101219
  2. DEXAMETHASONE [Concomitant]
     Indication: PREMEDICATION
     Dosage: MOST RECENT INFUSIONS 19DEC2010
  3. ZANTAC [Concomitant]
     Indication: PREMEDICATION
     Dosage: MOST RECENT INFUSIONS 19DEC2010
     Route: 042
  4. PHENERGAN [Concomitant]
     Indication: PREMEDICATION
     Dosage: MOST RECENT INFUSIONS 19DEC2010

REACTIONS (2)
  - APHASIA [None]
  - TRANSIENT ISCHAEMIC ATTACK [None]
